FAERS Safety Report 5042724-1 (Version None)
Quarter: 2006Q3

REPORT INFORMATION
  Report Type: 
  Country: None (occurrence: None)
  Receive Date: 20060705
  Receipt Date: 20060630
  Transmission Date: 20061208
  Serious: Yes (Death, Other)
  Sender: FDA-Public Use
  Company Number: DE-AVENTIS-200611920DE

PATIENT
  Age: 87 Year
  Sex: Male
  Weight: 95 kg

DRUGS (2)
  1. CLEXANE [Suspect]
     Route: 058
  2. MARCUMAR [Concomitant]

REACTIONS (4)
  - ABDOMINAL PAIN [None]
  - HAEMORRHAGE [None]
  - RENAL FAILURE [None]
  - SHOCK HAEMORRHAGIC [None]
